FAERS Safety Report 10146388 (Version 1)
Quarter: 2014Q2

REPORT INFORMATION
  Report Type: Spontaneous
  Country: US (occurrence: None)
  Receive Date: 20140430
  Receipt Date: 20140430
  Transmission Date: 20141212
  Serious: Yes (Disabling)
  Sender: FDA-Public Use
  Company Number: None

PATIENT
  Age: 55 Year
  Sex: Female
  Weight: 68.04 kg

DRUGS (7)
  1. CYMBALTA [Suspect]
     Indication: CONNECTIVE TISSUE DISORDER
     Dosage: 60MG, 1 CAPSULE, QHS, PO
     Route: 048
     Dates: start: 20120327, end: 20140418
  2. LEVOTHROID [Concomitant]
  3. NIFEDIAC [Concomitant]
  4. LISINOPRIL [Concomitant]
  5. IBUPROFEN [Concomitant]
  6. MULTI-VIT WITH CALCIUM [Concomitant]
  7. METAMUCIL [Concomitant]

REACTIONS (39)
  - Diarrhoea [None]
  - Muscle spasms [None]
  - Dehydration [None]
  - Salt craving [None]
  - Dry mouth [None]
  - Nasal dryness [None]
  - Dry throat [None]
  - Dry eye [None]
  - Dry skin [None]
  - Cough [None]
  - Nasal congestion [None]
  - Laryngitis [None]
  - Polyuria [None]
  - Hyperhidrosis [None]
  - Chills [None]
  - Hot flush [None]
  - Pruritus generalised [None]
  - Asthenia [None]
  - Fatigue [None]
  - Bradyphrenia [None]
  - Memory impairment [None]
  - Dizziness exertional [None]
  - Dizziness [None]
  - Dyspnoea [None]
  - Palpitations [None]
  - Tachycardia [None]
  - Headache [None]
  - Hyperacusis [None]
  - Parosmia [None]
  - Dysgeusia [None]
  - Dysgeusia [None]
  - Pain in jaw [None]
  - Toothache [None]
  - Hypoaesthesia [None]
  - Tunnel vision [None]
  - Photosensitivity reaction [None]
  - Emotional disorder [None]
  - Hypoaesthesia [None]
  - Hyperreflexia [None]
